FAERS Safety Report 13511466 (Version 1)
Quarter: 2017Q2

REPORT INFORMATION
  Report Type: Spontaneous
  Country: US (occurrence: US)
  Receive Date: 20170503
  Receipt Date: 20170503
  Transmission Date: 20170830
  Serious: Yes (Hospitalization)
  Sender: FDA-Public Use
  Company Number: PHHY2017US062212

PATIENT
  Age: 45 Year
  Sex: Male

DRUGS (1)
  1. BUDESONIDE. [Suspect]
     Active Substance: BUDESONIDE
     Indication: AUTOIMMUNE COLITIS
     Route: 065

REACTIONS (3)
  - Autoimmune colitis [Unknown]
  - Disease recurrence [Unknown]
  - Product use in unapproved indication [Unknown]
